FAERS Safety Report 14182318 (Version 1)
Quarter: 2017Q4

REPORT INFORMATION
  Report Type: Spontaneous
  Country: GB (occurrence: GB)
  Receive Date: 20171113
  Receipt Date: 20171113
  Transmission Date: 20180321
  Serious: Yes (Hospitalization, Other)
  Sender: FDA-Public Use
  Company Number: GB-009507513-1711GBR002831

PATIENT
  Age: 50 Year
  Sex: Male

DRUGS (5)
  1. ALGINIC ACID (+) ALUMINUM HYDROXIDE (+) CALCIUM CARBONATE (+) MAGNESIU [Concomitant]
  2. VALPROATE SODIUM. [Concomitant]
     Active Substance: VALPROATE SODIUM
  3. ACETAMINOPHEN, DIHYDROCODEINE BITARTRATE [Concomitant]
  4. MIRTAZAPINE. [Suspect]
     Active Substance: MIRTAZAPINE
     Indication: DEPRESSION
     Dosage: ON NIGHT
     Route: 048
  5. AMITRIPTYLINE HYDROCHLORIDE. [Concomitant]
     Active Substance: AMITRIPTYLINE HYDROCHLORIDE

REACTIONS (5)
  - Hallucination [Unknown]
  - Suicide attempt [Unknown]
  - Treatment noncompliance [Unknown]
  - Intentional overdose [Unknown]
  - Hallucination, auditory [Unknown]
